FAERS Safety Report 7531874-3 (Version None)
Quarter: 2011Q2

REPORT INFORMATION
  Report Type: 
  Country: None (occurrence: None)
  Receive Date: 20110608
  Receipt Date: 20110525
  Transmission Date: 20111010
  Serious: Yes (Other)
  Sender: FDA-Public Use
  Company Number: CA-JNJFOC-20110512620

PATIENT
  Sex: Male
  Weight: 100 kg

DRUGS (5)
  1. ATAZANAVIR [Concomitant]
  2. REMICADE [Suspect]
     Indication: CROHN'S DISEASE
     Route: 042
     Dates: start: 20081201
  3. TRUVADA [Concomitant]
  4. RITONAVIR [Concomitant]
  5. IMURAN [Concomitant]

REACTIONS (1)
  - NEPHROLITHIASIS [None]
